FAERS Safety Report 10135438 (Version 2)
Quarter: 2014Q2

REPORT INFORMATION
  Report Type: Report from Study
  Country: NL (occurrence: NL)
  Receive Date: 20140428
  Receipt Date: 20140521
  Transmission Date: 20141212
  Serious: Yes (Other)
  Sender: FDA-Public Use
  Company Number: PHHY2014NL050739

PATIENT
  Sex: Female
  Weight: 81 kg

DRUGS (9)
  1. ACLASTA [Suspect]
     Indication: OSTEOPOROSIS
     Dosage: 5 MG, ONCE EVERY 52 WEEKS
     Route: 042
     Dates: start: 20120502
  2. ACLASTA [Suspect]
     Dosage: 5 MG, ONCE EVERY 52 WEEKS
     Route: 042
     Dates: start: 20130424
  3. ACLASTA [Suspect]
     Dosage: 5 MG, ONCE EVERY 52 WEEKS
     Route: 042
     Dates: start: 20140424
  4. ALPHACALCIDOL [Concomitant]
     Dosage: 0.25 (UNITS NOT SPECIFIED) 1X2
  5. COVERSYL//PERINDOPRIL ARGININE [Concomitant]
     Dosage: 4 MG, UNK
  6. BUMETANIDE [Concomitant]
     Dosage: 2 (UNITS NOT SPECIFIED) 1X2
  7. SIMVASTATIN [Concomitant]
     Dosage: 20 MG, UNK
  8. OMEPRAZOLE [Concomitant]
     Dosage: 20 MG, UNK
  9. ACENOCOUMAROL [Concomitant]
     Dosage: UNK UKN, UNK

REACTIONS (1)
  - Terminal state [Not Recovered/Not Resolved]
